FAERS Safety Report 23878368 (Version 1)
Quarter: 2024Q2

REPORT INFORMATION
  Report Type: Spontaneous
  Country: US (occurrence: None)
  Receive Date: 20240520
  Receipt Date: 20240520
  Transmission Date: 20240715
  Serious: Yes (Congenital Anomaly)
  Sender: FDA-Public Use
  Company Number: None

PATIENT
  Sex: Female
  Weight: 2.69 kg

DRUGS (3)
  1. METHYLPHENIDATE [Suspect]
     Active Substance: METHYLPHENIDATE
  2. METHYLPHENIDATE (MATERNAL MEDICATION) [Concomitant]
  3. LEVOTHYROXINE (MATERNAL MEDICATION) [Concomitant]

REACTIONS (1)
  - Haemangioma [None]

NARRATIVE: CASE EVENT DATE: 20230523
